FAERS Safety Report 5961855-2 (Version None)
Quarter: 2008Q4

REPORT INFORMATION
  Report Type: 
  Country: None (occurrence: None)
  Receive Date: 20081121
  Receipt Date: 20080410
  Transmission Date: 20090506
  Serious: No
  Sender: FDA-Public Use
  Company Number: US-BRISTOL-MYERS SQUIBB COMPANY-14146930

PATIENT
  Sex: Male

DRUGS (1)
  1. AVALIDE [Suspect]
     Indication: HYPERTENSION
     Dosage: 1 DOSAGEFORM = 150/12.5 (UNITS NOT SPECIFIED)
     Dates: start: 20080301, end: 20080101

REACTIONS (2)
  - DYSGEUSIA [None]
  - DYSPEPSIA [None]
